FAERS Safety Report 6093388-X (Version None)
Quarter: 2009Q1

REPORT INFORMATION
  Report Type: 
  Country: None (occurrence: None)
  Receive Date: 20090226
  Receipt Date: 20090218
  Transmission Date: 20090719
  Serious: Yes (Hospitalization)
  Sender: FDA-Public Use
  Company Number: US-ROCHE-611809

PATIENT
  Sex: Female
  Weight: 69.4 kg

DRUGS (2)
  1. ACCUTANE [Suspect]
     Indication: ACNE
     Dosage: DOSAGE: 0.86 MG/KG/DAY FREQUENCY: QD
     Route: 048
     Dates: start: 20080908, end: 20090122
  2. LOESTRIN 1.5/30 [Concomitant]
     Dosage: DOSE: 23 FREQUENCY: 1/1 QD
     Route: 048

REACTIONS (1)
  - NEPHROLITHIASIS [None]
